FAERS Safety Report 8388338-7 (Version None)
Quarter: 2012Q2

REPORT INFORMATION
  Report Type: 
  Country: None (occurrence: None)
  Receive Date: 20120525
  Receipt Date: 20120518
  Transmission Date: 20120825
  Serious: No
  Sender: FDA-Public Use
  Company Number: US-US-EMD SERONO, INC.-7132740

PATIENT
  Sex: Female
  Weight: 79 kg

DRUGS (11)
  1. ZOLPIDEM [Concomitant]
     Indication: INSOMNIA
     Dates: start: 20090601
  2. LORAZEPAM [Concomitant]
     Indication: ANXIETY
     Route: 048
     Dates: start: 20090601
  3. LISINOPRIL [Concomitant]
     Indication: HYPERTENSION
     Dates: start: 20100801
  4. CYCLOBENAZPRINE [Concomitant]
     Indication: MUSCLE SPASMS
     Route: 048
     Dates: start: 20090101
  5. REBIF [Suspect]
     Route: 058
     Dates: start: 20110801
  6. REBIF [Suspect]
     Route: 058
     Dates: start: 20120301
  7. CYMBALTA [Concomitant]
     Indication: DEPRESSION
     Route: 048
     Dates: start: 20110801
  8. PRAVASTATIN [Concomitant]
     Indication: HYPERLIPIDAEMIA
     Dates: start: 20090601
  9. MINOXIDIL [Concomitant]
     Indication: ALOPECIA
     Route: 061
     Dates: start: 20090601
  10. VALIUM [Concomitant]
     Indication: TINNITUS
     Dates: start: 20111101
  11. REBIF [Suspect]
     Indication: RELAPSING-REMITTING MULTIPLE SCLEROSIS
     Route: 058
     Dates: start: 20040624

REACTIONS (5)
  - FALL [None]
  - INAPPROPRIATE SCHEDULE OF DRUG ADMINISTRATION [None]
  - FATIGUE [None]
  - MUSCLE TIGHTNESS [None]
  - DEPRESSION [None]
